FAERS Safety Report 7309058-3 (Version None)
Quarter: 2011Q1

REPORT INFORMATION
  Report Type: 
  Country: None (occurrence: None)
  Receive Date: 20110223
  Receipt Date: 20110216
  Transmission Date: 20110831
  Serious: Yes (Hospitalization, Other)
  Sender: FDA-Public Use
  Company Number: US-PFIZER INC-2011034925

PATIENT
  Sex: Male
  Weight: 133 kg

DRUGS (10)
  1. XANAX [Suspect]
     Indication: BIPOLAR DISORDER
  2. TOPIRAMATE [Suspect]
     Indication: POST-TRAUMATIC STRESS DISORDER
  3. XANAX [Suspect]
     Indication: ANXIETY
  4. XANAX [Suspect]
     Indication: PANIC ATTACK
     Dosage: UNK
     Route: 048
  5. TOPIRAMATE [Suspect]
     Indication: BIPOLAR DISORDER
     Dosage: 50 MG, 2X/DAY
     Route: 048
     Dates: start: 20090401, end: 20100901
  6. ATENOLOL [Concomitant]
     Indication: HYPERTENSION
     Dosage: UNK
     Route: 048
  7. XANAX [Suspect]
     Indication: POST-TRAUMATIC STRESS DISORDER
  8. XANAX [Suspect]
     Indication: NERVOUSNESS
  9. TOPIRAMATE [Suspect]
     Indication: ANXIETY
  10. TOPIRAMATE [Suspect]
     Indication: NERVOUSNESS

REACTIONS (10)
  - URETERIC OBSTRUCTION [None]
  - SPINAL COLUMN STENOSIS [None]
  - HYPOAESTHESIA [None]
  - HEADACHE [None]
  - NEPHROLITHIASIS [None]
  - INFECTION [None]
  - NEGATIVE THOUGHTS [None]
  - BLOOD PRESSURE DECREASED [None]
  - GENERALISED OEDEMA [None]
  - DIZZINESS [None]
